FAERS Safety Report 20682270 (Version 2)
Quarter: 2022Q2

REPORT INFORMATION
  Report Type: Spontaneous
  Country: US (occurrence: US)
  Receive Date: 20220407
  Receipt Date: 20220502
  Transmission Date: 20220721
  Serious: Yes (Hospitalization, Other)
  Sender: FDA-Public Use
  Company Number: US-JNJFOC-20220364642

PATIENT
  Age: 51 Year
  Sex: Male
  Weight: 85.806 kg

DRUGS (8)
  1. INVEGA TRINZA [Suspect]
     Active Substance: PALIPERIDONE PALMITATE
     Indication: Schizoaffective disorder
     Route: 030
     Dates: start: 20211117
  2. INVEGA TRINZA [Suspect]
     Active Substance: PALIPERIDONE PALMITATE
     Dosage: TOTAL 2 NUMBER OF INJECTIONS THE PATIENT HAS RECEIVED.
     Route: 030
     Dates: start: 20211208, end: 20220318
  3. INVEGA TRINZA [Suspect]
     Active Substance: PALIPERIDONE PALMITATE
  4. DEPAKOTE ER [Concomitant]
     Active Substance: DIVALPROEX SODIUM
  5. LOTRISONE [Concomitant]
     Active Substance: BETAMETHASONE DIPROPIONATE\CLOTRIMAZOLE
     Indication: Psoriasis
     Dosage: 1%
  6. NIZORAL [Concomitant]
     Active Substance: KETOCONAZOLE
     Indication: Psoriasis
     Dosage: 2% SHAMPOO, 1000MG/DAY
     Route: 061
  7. COLACE [Concomitant]
     Active Substance: DOCUSATE SODIUM
  8. DIVALPROEX SODIUM [Concomitant]
     Active Substance: DIVALPROEX SODIUM

REACTIONS (5)
  - Pustule [Recovering/Resolving]
  - Injection site streaking [Recovering/Resolving]
  - Injection site pain [Recovering/Resolving]
  - Injection site rash [Recovering/Resolving]
  - Injection site erythema [Recovering/Resolving]

NARRATIVE: CASE EVENT DATE: 20220318
